FAERS Safety Report 8996928 (Version 1)
Quarter: 2012Q4

REPORT INFORMATION
  Report Type: Spontaneous
  Country: DE (occurrence: None)
  Receive Date: 20121221
  Receipt Date: 20121221
  Transmission Date: 20130627
  Serious: Yes (Hospitalization, Other)
  Sender: FDA-Public Use
  Company Number: GER/FER/12/0027057

PATIENT
  Age: 0 Year
  Sex: Male
  Weight: 2.25 kg

DRUGS (2)
  1. RISPERIDONE (RISPERIDONE) [Suspect]
     Indication: DRUG USE FOR UNKNOWN INDICATION
     Route: 064
  2. FOLSAEURE (FOLIC ACID) [Concomitant]

REACTIONS (6)
  - Foetal heart rate deceleration [None]
  - Exposure during pregnancy [None]
  - Feeding disorder [None]
  - Foetal growth restriction [None]
  - Caesarean section [None]
  - Neonatal respiratory distress syndrome [None]
